FAERS Safety Report 6306155-6 (Version None)
Quarter: 2009Q3

REPORT INFORMATION
  Report Type: 
  Country: None (occurrence: None)
  Receive Date: 20090810
  Receipt Date: 20090723
  Transmission Date: 20100115
  Serious: Yes (Hospitalization)
  Sender: FDA-Public Use
  Company Number: 2009AL002988

PATIENT
  Age: 55 Year
  Sex: Female

DRUGS (15)
  1. DIGOXIN [Suspect]
     Dosage: 0.25MG, DAILY, PO
     Route: 048
     Dates: start: 20070201
  2. NORVASC [Concomitant]
  3. LEVOXYL [Concomitant]
  4. METFORMIN HCL [Concomitant]
  5. PLAVIX [Concomitant]
  6. CORGARD [Concomitant]
  7. LORTAB [Concomitant]
  8. FLEXERIL [Concomitant]
  9. EQUALINE [Concomitant]
  10. LIPITOR [Concomitant]
  11. DILANTIN [Concomitant]
  12. LEVOTHYROXINE [Concomitant]
  13. HYDROCODONE [Concomitant]
  14. LISINOPRIL [Concomitant]
  15. FUROSEMIDE [Concomitant]

REACTIONS (8)
  - CHEST PAIN [None]
  - ECONOMIC PROBLEM [None]
  - FEELING ABNORMAL [None]
  - HEADACHE [None]
  - ILL-DEFINED DISORDER [None]
  - MULTIPLE INJURIES [None]
  - NAUSEA [None]
  - SYNCOPE [None]
